FAERS Safety Report 9677419 (Version 1)
Quarter: 2013Q4

REPORT INFORMATION
  Report Type: Spontaneous
  Country: US (occurrence: US)
  Receive Date: 20131108
  Receipt Date: 20131108
  Transmission Date: 20140711
  Serious: No
  Sender: FDA-Public Use
  Company Number: US-ENDO PHARMACEUTICALS INC.-PHEN20120005

PATIENT
  Age: 33 Year
  Sex: Female
  Weight: 74.91 kg

DRUGS (2)
  1. PHENTERMINE HCL TABLETS [Suspect]
     Indication: WEIGHT INCREASED
     Dosage: 18.25 MG
     Route: 048
     Dates: start: 20120329, end: 20120403
  2. PHENTERMINE HCL TABLETS [Suspect]
     Route: 048
     Dates: start: 201203, end: 20120328

REACTIONS (1)
  - Cholelithiasis [Not Recovered/Not Resolved]
